FAERS Safety Report 16794956 (Version 1)
Quarter: 2019Q4

REPORT INFORMATION
  Report Type: Spontaneous
  Country: US (occurrence: US)
  Receive Date: 20190910
  Receipt Date: 20190910
  Transmission Date: 20200122
  Serious: No
  Sender: FDA-Public Use
  Company Number: None

PATIENT
  Age: 71 Year
  Sex: Female
  Weight: 66.15 kg

DRUGS (1)
  1. LUMASON [Suspect]
     Active Substance: SULFUR HEXAFLUORIDE
     Indication: DRUG THERAPY
     Route: 040
     Dates: start: 20190910, end: 20190910

REACTIONS (4)
  - Erythema [None]
  - Flushing [None]
  - Musculoskeletal discomfort [None]
  - Hypotension [None]

NARRATIVE: CASE EVENT DATE: 20190910
